FAERS Safety Report 10191378 (Version 1)
Quarter: 2014Q2

REPORT INFORMATION
  Report Type: Spontaneous
  Country: US (occurrence: None)
  Receive Date: 20140522
  Receipt Date: 20140522
  Transmission Date: 20141212
  Serious: No
  Sender: FDA-Public Use
  Company Number: None

PATIENT
  Age: 44 Year
  Sex: Female
  Weight: 142.88 kg

DRUGS (1)
  1. DULOXETINE [Suspect]
     Indication: MAJOR DEPRESSION
     Dosage: 1 PILL
     Route: 048
     Dates: start: 20140425, end: 20140504

REACTIONS (5)
  - Suicidal ideation [None]
  - Product substitution issue [None]
  - Depression [None]
  - Fear [None]
  - Product quality issue [None]
